FAERS Safety Report 7122794-7 (Version None)
Quarter: 2010Q4

REPORT INFORMATION
  Report Type: 
  Country: None (occurrence: None)
  Receive Date: 20101124
  Receipt Date: 20101117
  Transmission Date: 20110411
  Serious: Yes (Life-Threatening, Other)
  Sender: FDA-Public Use
  Company Number: US-GENENTECH-308607

PATIENT
  Sex: Female
  Weight: 87.982 kg

DRUGS (8)
  1. XOLAIR [Suspect]
     Indication: ASTHMA
     Dosage: 300 MG, 1/MONTH
     Route: 058
     Dates: start: 20100915, end: 20101020
  2. BENICAR [Concomitant]
     Indication: PRODUCT USED FOR UNKNOWN INDICATION
  3. ADVAIR [Concomitant]
     Indication: PRODUCT USED FOR UNKNOWN INDICATION
     Dosage: UNK
  4. SINGULAIR [Concomitant]
     Indication: PRODUCT USED FOR UNKNOWN INDICATION
     Dosage: 10 MG, QD
  5. ALLEGRA [Concomitant]
     Indication: PRODUCT USED FOR UNKNOWN INDICATION
     Dosage: 180 MG, QD
  6. IMMUNOTHERAPY (AEROALLERGENS + DUST MITE) [Concomitant]
     Indication: HYPERSENSITIVITY
  7. QVAR 40 [Concomitant]
     Indication: ASTHMA
     Dosage: 2 PUFF, BID
  8. VENTOLIN [Concomitant]
     Indication: ASTHMA
     Dosage: 2 PUFF, UNK

REACTIONS (2)
  - ANAPHYLACTIC SHOCK [None]
  - COUGH [None]
